FAERS Safety Report 7501299-5 (Version None)
Quarter: 2011Q2

REPORT INFORMATION
  Report Type: 
  Country: None (occurrence: None)
  Receive Date: 20110524
  Receipt Date: 20110520
  Transmission Date: 20111010
  Serious: Yes (Other)
  Sender: FDA-Public Use
  Company Number: VE-PFIZER INC-2011102215

PATIENT
  Age: 55 Year
  Sex: Female

DRUGS (3)
  1. EUTHYROX [Concomitant]
     Dosage: 100 MG/G, CYCLIC, 2 DAYS A WEEK
     Route: 048
     Dates: start: 20080101
  2. LIPITOR [Suspect]
     Indication: HYPERCHOLESTEROLAEMIA
     Dosage: 20 MG, 1X/DAY
     Route: 048
     Dates: start: 20080101
  3. EUTHYROX [Concomitant]
     Indication: HYPOTHYROIDISM
     Dosage: 75 MG/G, CYCLIC, 5 DAYS A WEEK
     Route: 048
     Dates: start: 20080101

REACTIONS (1)
  - HERNIA REPAIR [None]
